FAERS Safety Report 12818532 (Version 1)
Quarter: 2016Q4

REPORT INFORMATION
  Report Type: Spontaneous
  Country: JP (occurrence: JP)
  Receive Date: 20161006
  Receipt Date: 20161006
  Transmission Date: 20170207
  Serious: Yes (Other)
  Sender: FDA-Public Use
  Company Number: PHHY2013JP064143

PATIENT
  Age: 64 Year
  Sex: Male

DRUGS (1)
  1. TEGRETOL [Suspect]
     Active Substance: CARBAMAZEPINE
     Indication: DIABETIC NEUROPATHY
     Dosage: UNK
     Route: 048

REACTIONS (14)
  - Interstitial lung disease [Recovered/Resolved]
  - Product use issue [Unknown]
  - Oropharyngeal pain [Unknown]
  - Generalised oedema [Unknown]
  - Human herpes virus 6 serology positive [Unknown]
  - Generalised erythema [Recovering/Resolving]
  - Pyrexia [Recovering/Resolving]
  - Cytomegalovirus infection [Recovered/Resolved]
  - Hepatic function abnormal [Recovered/Resolved]
  - Drug reaction with eosinophilia and systemic symptoms [Recovered/Resolved]
  - Eosinophilia [Recovering/Resolving]
  - Lymphadenopathy [Recovering/Resolving]
  - Dyspnoea [Unknown]
  - Diarrhoea [Unknown]
